FAERS Safety Report 23789879 (Version 1)
Quarter: 2024Q2

REPORT INFORMATION
  Report Type: Spontaneous
  Country: US (occurrence: None)
  Receive Date: 20240426
  Receipt Date: 20240426
  Transmission Date: 20240716
  Serious: Yes (Hospitalization)
  Sender: FDA-Public Use
  Company Number: None

PATIENT
  Sex: Female

DRUGS (1)
  1. IMATINIB MESYLATE [Suspect]
     Active Substance: IMATINIB MESYLATE
     Indication: Leukaemoid reaction
     Dosage: 400MG ORAL??TAKE 1 TABLEET BY MOUTH 1 TIME A DAY ON MONDAY TO SATURDAY.??
     Route: 048
     Dates: start: 202106

REACTIONS (1)
  - Red blood cell count decreased [None]
